FAERS Safety Report 5615172-0 (Version None)
Quarter: 2008Q1

REPORT INFORMATION
  Report Type: 
  Country: None (occurrence: None)
  Receive Date: 20080206
  Receipt Date: 20071025
  Transmission Date: 20080703
  Serious: No
  Sender: FDA-Public Use
  Company Number: A0689820A

PATIENT
  Sex: Female

DRUGS (2)
  1. ARIXTRA [Suspect]
     Dosage: 7.5MG UNKNOWN
     Route: 058
  2. TARCEVA [Suspect]
     Route: 065

REACTIONS (1)
  - WEIGHT DECREASED [None]
